FAERS Safety Report 8029338-6 (Version None)
Quarter: 2012Q1

REPORT INFORMATION
  Report Type: 
  Country: None (occurrence: None)
  Receive Date: 20120106
  Receipt Date: 20120103
  Transmission Date: 20120608
  Serious: Yes (Other)
  Sender: FDA-Public Use
  Company Number: BR-ABBOTT-12P-020-0889095-00

PATIENT
  Sex: Male
  Weight: 130 kg

DRUGS (4)
  1. VALPROATE SODIUM [Concomitant]
     Indication: CEREBRAL ISCHAEMIA
  2. VALPROATE SODIUM [Concomitant]
     Indication: EPILEPSY
     Route: 048
  3. CARBAMAZEPINE [Concomitant]
     Indication: CONVULSION PROPHYLAXIS
     Dosage: 3.5 TABLETS PER DAY
     Route: 048
  4. DEPAKOTE ER [Suspect]
     Indication: EPILEPSY
     Route: 048

REACTIONS (1)
  - LOSS OF CONSCIOUSNESS [None]
